FAERS Safety Report 14739308 (Version 3)
Quarter: 2018Q2

REPORT INFORMATION
  Report Type: Spontaneous
  Country: US (occurrence: US)
  Receive Date: 20180410
  Receipt Date: 20180625
  Transmission Date: 20180711
  Serious: Yes (Other)
  Sender: FDA-Public Use
  Company Number: US-AMGEN-USASP2018045718

PATIENT
  Age: 48 Year
  Sex: Female
  Weight: 76.64 kg

DRUGS (32)
  1. METHOTREXATE. [Suspect]
     Active Substance: METHOTREXATE
     Indication: RHEUMATOID ARTHRITIS
     Dosage: 7.5 MG, QWK (3 TABLETS)
     Route: 048
     Dates: start: 201605, end: 20170924
  2. RITUXAN [Concomitant]
     Active Substance: RITUXIMAB
     Dosage: UNK
     Route: 042
     Dates: start: 20100812, end: 20100826
  3. XOPENEX [Concomitant]
     Active Substance: LEVALBUTEROL HYDROCHLORIDE
     Dosage: 1.25 MG, Q6H (1.25MG/3ML)
  4. FOSAMAX [Suspect]
     Active Substance: ALENDRONATE SODIUM
     Indication: OSTEOPOROSIS
     Dosage: UNK
     Route: 065
     Dates: start: 2005, end: 2012
  5. NASONEX [Concomitant]
     Active Substance: MOMETASONE FUROATE
     Dosage: 50 MUG, UNK (2 SPRAYS IN EACH NOSTRIL DAILY)
     Route: 045
  6. ORENCIA [Suspect]
     Active Substance: ABATACEPT
     Indication: PRODUCT USED FOR UNKNOWN INDICATION
     Dosage: 250 MG, Q4WK
     Route: 042
     Dates: start: 20100118, end: 20100413
  7. SOLU-MEDROL [Concomitant]
     Active Substance: METHYLPREDNISOLONE SODIUM SUCCINATE
     Dosage: 125 MG, QD
     Route: 042
  8. RITUXAN [Concomitant]
     Active Substance: RITUXIMAB
     Dosage: UNK
     Route: 042
     Dates: start: 20110615, end: 20110628
  9. IRON [Concomitant]
     Active Substance: IRON
     Dosage: 125 MG, QWK
     Route: 042
     Dates: start: 20120307
  10. SULFASALAZINE. [Concomitant]
     Active Substance: SULFASALAZINE
     Dosage: UNK
  11. CALCIUM [Concomitant]
     Active Substance: CALCIUM
     Dosage: 500 MG, QD
  12. PROAIR HFA [Concomitant]
     Active Substance: ALBUTEROL SULFATE
     Dosage: 90 MUG, UNK (1 PUFF EVERY 3-4 HOURS)
     Route: 045
  13. XELJANZ [Concomitant]
     Active Substance: TOFACITINIB CITRATE
     Dosage: 5 MG, BID
     Route: 048
     Dates: start: 20180426
  14. REMICADE [Concomitant]
     Active Substance: INFLIXIMAB
     Dosage: UNK
     Route: 042
     Dates: start: 20080416, end: 20080514
  15. REMICADE [Concomitant]
     Active Substance: INFLIXIMAB
     Dosage: UNK
     Route: 042
     Dates: start: 20080910, end: 20081215
  16. CELEBREX [Concomitant]
     Active Substance: CELECOXIB
     Dosage: UNK
  17. DUONEB [Concomitant]
     Active Substance: ALBUTEROL SULFATE\IPRATROPIUM BROMIDE
     Dosage: UNK UNK, Q4H (0.5MG-3MG)
  18. FOLIC ACID. [Concomitant]
     Active Substance: FOLIC ACID
     Dosage: 1 MG, QD
     Route: 048
  19. RITUXAN [Concomitant]
     Active Substance: RITUXIMAB
     Dosage: UNK
     Route: 042
     Dates: start: 20110103, end: 20110221
  20. REMICADE [Concomitant]
     Active Substance: INFLIXIMAB
     Dosage: UNK
     Route: 042
     Dates: start: 20080305, end: 20080319
  21. MEPOLIZUMAB [Concomitant]
     Active Substance: MEPOLIZUMAB
     Dosage: UNK UNK, QMO
     Route: 042
     Dates: start: 20090511, end: 20090807
  22. PREDNISONE. [Concomitant]
     Active Substance: PREDNISONE
     Dosage: 40 MG, BID
     Route: 048
  23. TYLENOL ARTHRITIS PAIN [Concomitant]
     Active Substance: ACETAMINOPHEN
     Dosage: UNK UNK, AS NECESSARY (4-6 TABLETS)
  24. CALCIUM [Concomitant]
     Active Substance: CALCIUM
     Dosage: 1000 MG, QD
  25. ENBREL [Suspect]
     Active Substance: ETANERCEPT
     Dosage: UNK
     Route: 065
     Dates: start: 200110, end: 200204
  26. INTRON A [Concomitant]
     Active Substance: INTERFERON ALFA-2B
     Dosage: 3 MILLION UNIT, 3 TIMES/WK
     Route: 058
     Dates: start: 20090116, end: 20090420
  27. CORTISONE [Concomitant]
     Active Substance: CORTISONE\HYDROCORTISONE
     Dosage: UNK
     Dates: start: 20170221
  28. ENBREL [Suspect]
     Active Substance: ETANERCEPT
     Indication: PRODUCT USED FOR UNKNOWN INDICATION
     Dosage: 25 MG, 2 TIMES/WK
     Route: 058
  29. ENBREL [Suspect]
     Active Substance: ETANERCEPT
     Dosage: UNK
     Route: 058
     Dates: start: 201307, end: 201404
  30. ENBREL [Suspect]
     Active Substance: ETANERCEPT
     Dosage: UNK
     Route: 058
     Dates: start: 2014, end: 201411
  31. RITUXAN [Concomitant]
     Active Substance: RITUXIMAB
     Dosage: UNK
     Route: 042
     Dates: start: 201302, end: 20130301
  32. ELMIRON [Concomitant]
     Active Substance: PENTOSAN POLYSULFATE SODIUM
     Dosage: 100 MG, TID
     Route: 048

REACTIONS (56)
  - Rheumatoid arthritis [Unknown]
  - Knee arthroplasty [Unknown]
  - Lumbar radiculopathy [Unknown]
  - Hand fracture [Unknown]
  - Staphylococcal infection [Unknown]
  - Device related infection [Unknown]
  - Impaired healing [Recovered/Resolved]
  - Gait disturbance [Unknown]
  - Dry mouth [Unknown]
  - Atypical femur fracture [Unknown]
  - Hypogammaglobulinaemia [Unknown]
  - Foot fracture [Unknown]
  - Skin abrasion [Recovered/Resolved]
  - Limb injury [Unknown]
  - Lymphocyte count decreased [Unknown]
  - Fracture nonunion [Unknown]
  - Pyrexia [Unknown]
  - Intraductal papillary mucinous neoplasm [Unknown]
  - Joint dislocation [Unknown]
  - Ulna fracture [Recovered/Resolved]
  - Urinary tract infection pseudomonal [Unknown]
  - Osteoporosis [Unknown]
  - Blood albumin decreased [Unknown]
  - Blood urea increased [Unknown]
  - Neutrophil count decreased [Unknown]
  - Gastrooesophageal reflux disease [Unknown]
  - Blood parathyroid hormone decreased [Unknown]
  - Hepatic cyst [Unknown]
  - Mineral supplementation [Unknown]
  - Infection [Unknown]
  - Cataract operation [Unknown]
  - Arteriosclerosis coronary artery [Unknown]
  - Ankle fracture [Unknown]
  - Malaise [Unknown]
  - Monocyte count increased [Unknown]
  - Hypercalcaemia [Unknown]
  - Drug effect incomplete [Unknown]
  - Bunion operation [Unknown]
  - Pneumonia [Unknown]
  - Chills [Unknown]
  - Blood urea nitrogen/creatinine ratio increased [Unknown]
  - White blood cell count decreased [Unknown]
  - Rash [Unknown]
  - Urinary tract infection [Unknown]
  - Oesophagogastric fundoplasty [Unknown]
  - Hypertension [Unknown]
  - Hyperlipidaemia [Unknown]
  - Biopsy bone marrow [Unknown]
  - Rotator cuff syndrome [Recovering/Resolving]
  - Fatigue [Unknown]
  - Pulmonary eosinophilia [Unknown]
  - Eye infection [Unknown]
  - Pancreatic cyst [Unknown]
  - Vitamin D deficiency [Unknown]
  - Sleep disorder due to a general medical condition [Unknown]
  - Sinusitis [Unknown]

NARRATIVE: CASE EVENT DATE: 20001022
